FAERS Safety Report 9768232 (Version 2)
Quarter: 2014Q1

REPORT INFORMATION
  Report Type: Report from Study
  Country: ES (occurrence: ES)
  Receive Date: 20131217
  Receipt Date: 20140118
  Transmission Date: 20141002
  Serious: Yes (Death, Life-Threatening, Hospitalization)
  Sender: FDA-Public Use
  Company Number: ES-ABBVIE-13P-144-1179107-00

PATIENT
  Age: 56 Year
  Sex: 0
  Weight: 89 kg

DRUGS (1)
  1. HUMIRA [Suspect]
     Indication: PSORIASIS
     Dosage: WEEK 0: 80 MG, LATER: 40 MG EOW
     Dates: start: 20111018

REACTIONS (16)
  - Renal failure [Fatal]
  - Acute respiratory failure [Fatal]
  - Respiratory tract infection [Unknown]
  - Anaemia [Unknown]
  - Metabolic acidosis [Unknown]
  - Hyperkalaemia [Unknown]
  - Hypercoagulation [Unknown]
  - Traumatic lung injury [Unknown]
  - Renal failure chronic [Unknown]
  - Uraemic encephalopathy [Unknown]
  - Pneumonia [Unknown]
  - Escherichia urinary tract infection [Unknown]
  - Systemic candida [Unknown]
  - Toxic skin eruption [Unknown]
  - Klebsiella infection [Unknown]
  - Hypoxia [Fatal]
